FAERS Safety Report 9253761 (Version 1)
Quarter: 2013Q1

REPORT INFORMATION
  Report Type: Spontaneous
  Country: US (occurrence: None)
  Receive Date: 20121203
  Receipt Date: 20121203
  Transmission Date: 20140127
  Serious: Yes (Hospitalization, Other)
  Sender: FDA-Public Use
  Company Number: 2008-183939-NL

PATIENT
  Age: 33 Year
  Sex: Female
  Weight: 77.1 kg

DRUGS (2)
  1. NUVARING (ETONOGESTREL (+) ETHINYL ESTRADIOL) VAGINAL RING [Suspect]
     Dosage: DOSE TEXT 3 WEEKS IN:  1 WEEK OUT, CONTINUING: NO:
     Dates: start: 200608, end: 012007
  2. ADVIL (IBUPROFEN) [Concomitant]

REACTIONS (4)
  - Pulmonary embolism [None]
  - Deep vein thrombosis [None]
  - Weight increased [None]
  - Candida infection [None]
